FAERS Safety Report 8541240 (Version 2)
Quarter: 2012Q4

REPORT INFORMATION
  Report Type: 
  Country: US (occurrence: US)
  Receive Date: 20120502
  Receipt Date: 20120911
  Transmission Date: 20130627
  Serious: Yes (Other)
  Sender: FDA-Public Use
  Company Number: PHEH2012US007431

PATIENT
  Age: 50 None
  Sex: Female
  Weight: 65.31 kg

DRUGS (8)
  1. GILENYA [Suspect]
     Indication: MULTIPLE SCLEROSIS
     Dosage: 0.5 mg, QD
     Route: 048
     Dates: start: 201201, end: 20120409
  2. GILENYA [Suspect]
     Dosage: 0.5 mg, QD
     Route: 048
  3. CRANBERRY [Concomitant]
     Route: 048
  4. FISH OIL [Concomitant]
     Route: 048
  5. CALCIUM [Concomitant]
     Route: 048
  6. VITAMIN C [Concomitant]
     Route: 048
  7. VITAMIN D [Concomitant]
     Route: 048
  8. TERBINAFINE [Concomitant]

REACTIONS (7)
  - Ocular hyperaemia [Unknown]
  - Visual impairment [Unknown]
  - Anogenital warts [Recovering/Resolving]
  - White blood cell count decreased [Unknown]
  - Vitamin D decreased [Recovering/Resolving]
  - Red blood cell count decreased [Recovering/Resolving]
  - Hypertension [Recovering/Resolving]
